FAERS Safety Report 9300060 (Version 1)
Quarter: 2013Q2

REPORT INFORMATION
  Report Type: Spontaneous
  Country: CN (occurrence: CN)
  Receive Date: 20130521
  Receipt Date: 20130521
  Transmission Date: 20140414
  Serious: Yes (Other)
  Sender: FDA-Public Use
  Company Number: CN-009507513-1305CHN009648

PATIENT
  Age: 14 Year
  Sex: Male

DRUGS (1)
  1. CLARITYNE [Suspect]
     Indication: RHINITIS ALLERGIC
     Dosage: 10 MG, QD
     Route: 048
     Dates: start: 20120225, end: 20120225

REACTIONS (1)
  - Convulsions local [Recovered/Resolved]
